FAERS Safety Report 22224002 (Version 1)
Quarter: 2023Q2

REPORT INFORMATION
  Report Type: Spontaneous
  Country: CA (occurrence: CA)
  Receive Date: 20230418
  Receipt Date: 20230418
  Transmission Date: 20230721
  Serious: Yes (Other)
  Sender: FDA-Public Use
  Company Number: CA-PFIZER INC-202101671225

PATIENT
  Age: 64 Year
  Sex: Female

DRUGS (5)
  1. IBRANCE [Suspect]
     Active Substance: PALBOCICLIB
     Dosage: 125 MG, 21 DAYS ON, 7 DAYS OFF
     Route: 048
     Dates: start: 20200709
  2. IBRANCE [Suspect]
     Active Substance: PALBOCICLIB
     Dosage: 100 MG, DAILY FOR 21 DAYS EVERY 28 DAYS
     Route: 048
  3. IBRANCE [Suspect]
     Active Substance: PALBOCICLIB
     Dosage: 75 MG
     Route: 048
     Dates: end: 202208
  4. IBRANCE [Suspect]
     Active Substance: PALBOCICLIB
     Dosage: 75 MG, DAILY 21 DAYS ON AND 14 DAYS OFF
     Route: 048
  5. LETROZOLE [Concomitant]
     Active Substance: LETROZOLE
     Dosage: UNK

REACTIONS (3)
  - Neutropenia [Unknown]
  - Hepatic cirrhosis [Unknown]
  - White blood cell disorder [Unknown]
